FAERS Safety Report 16692960 (Version 1)
Quarter: 2019Q3

REPORT INFORMATION
  Report Type: Report from Study
  Country: GB (occurrence: GB)
  Receive Date: 20190812
  Receipt Date: 20190812
  Transmission Date: 20191004
  Serious: Yes (Hospitalization)
  Sender: FDA-Public Use
  Company Number: GB-AMGEN-GBRSL2019125593

PATIENT
  Sex: Female

DRUGS (2)
  1. ARANESP [Suspect]
     Active Substance: DARBEPOETIN ALFA
     Indication: PRODUCT USED FOR UNKNOWN INDICATION
     Dosage: UNK UNK, Q2WK
     Route: 065
  2. ARANESP [Suspect]
     Active Substance: DARBEPOETIN ALFA
     Dosage: UNK UNK, QMO
     Route: 065

REACTIONS (1)
  - Infection [Unknown]
